FAERS Safety Report 15129817 (Version 2)
Quarter: 2018Q3

REPORT INFORMATION
  Report Type: Report from Study
  Country: CA (occurrence: CA)
  Receive Date: 20180711
  Receipt Date: 20180719
  Transmission Date: 20181010
  Serious: No
  Sender: FDA-Public Use
  Company Number: CA-ROCHE-2149598

PATIENT
  Age: 52 Year
  Sex: Female

DRUGS (1)
  1. OCREVUS [Suspect]
     Active Substance: OCRELIZUMAB
     Indication: RELAPSING-REMITTING MULTIPLE SCLEROSIS
     Dosage: 300 MG IV DAY 0 AND DAY 14, 600 MG IV Q 6 MONTHS
     Route: 042
     Dates: start: 20180104

REACTIONS (4)
  - Gingival bleeding [Unknown]
  - Tooth disorder [Recovered/Resolved]
  - Gingival pain [Unknown]
  - Gingivitis [Recovering/Resolving]

NARRATIVE: CASE EVENT DATE: 201806
